FAERS Safety Report 13413440 (Version 3)
Quarter: 2018Q1

REPORT INFORMATION
  Report Type: Spontaneous
  Country: US (occurrence: US)
  Receive Date: 20170406
  Receipt Date: 20180311
  Transmission Date: 20180508
  Serious: No
  Sender: FDA-Public Use
  Company Number: US-JNJFOC-20170312254

PATIENT
  Age: 7 Year
  Sex: Male

DRUGS (12)
  1. RISPERDAL [Suspect]
     Active Substance: RISPERIDONE
     Indication: OBSESSIVE-COMPULSIVE DISORDER
     Route: 048
     Dates: start: 2012, end: 2013
  2. RISPERIDONE. [Suspect]
     Active Substance: RISPERIDONE
     Indication: ANXIETY
     Route: 048
     Dates: start: 20120616, end: 20121010
  3. RISPERIDONE. [Suspect]
     Active Substance: RISPERIDONE
     Indication: TOURETTE^S DISORDER
     Route: 048
     Dates: start: 20120616, end: 20121010
  4. RISPERIDONE. [Suspect]
     Active Substance: RISPERIDONE
     Indication: ATTENTION DEFICIT/HYPERACTIVITY DISORDER
     Route: 048
     Dates: start: 20130918, end: 20131002
  5. RISPERDAL [Suspect]
     Active Substance: RISPERIDONE
     Indication: ATTENTION DEFICIT/HYPERACTIVITY DISORDER
     Route: 048
     Dates: start: 20070125, end: 20130920
  6. RISPERIDONE. [Suspect]
     Active Substance: RISPERIDONE
     Indication: ATTENTION DEFICIT/HYPERACTIVITY DISORDER
     Route: 048
     Dates: start: 20120616, end: 20121010
  7. RISPERIDONE. [Suspect]
     Active Substance: RISPERIDONE
     Indication: OBSESSIVE-COMPULSIVE DISORDER
     Route: 048
     Dates: start: 20120616, end: 20121010
  8. RISPERDAL [Suspect]
     Active Substance: RISPERIDONE
     Indication: OBSESSIVE-COMPULSIVE DISORDER
     Route: 048
     Dates: start: 20070125, end: 20130920
  9. RISPERIDONE. [Suspect]
     Active Substance: RISPERIDONE
     Indication: TOURETTE^S DISORDER
     Route: 048
     Dates: start: 20130918, end: 20131002
  10. RISPERIDONE. [Suspect]
     Active Substance: RISPERIDONE
     Indication: ANXIETY
     Route: 048
     Dates: start: 20130918, end: 20131002
  11. RISPERDAL [Suspect]
     Active Substance: RISPERIDONE
     Indication: ATTENTION DEFICIT/HYPERACTIVITY DISORDER
     Route: 048
     Dates: start: 2012, end: 2013
  12. RISPERIDONE. [Suspect]
     Active Substance: RISPERIDONE
     Indication: OBSESSIVE-COMPULSIVE DISORDER
     Route: 048
     Dates: start: 20130918, end: 20131002

REACTIONS (4)
  - Emotional distress [Unknown]
  - Product use in unapproved indication [Unknown]
  - Gynaecomastia [Unknown]
  - Off label use [Unknown]

NARRATIVE: CASE EVENT DATE: 20070125
